FAERS Safety Report 23349756 (Version 3)
Quarter: 2025Q4

REPORT INFORMATION
  Report Type: Spontaneous
  Country: US (occurrence: US)
  Receive Date: 20231229
  Receipt Date: 20251014
  Transmission Date: 20260117
  Serious: Yes (Other)
  Sender: SANOFI AVENTIS
  Company Number: US-SA-SAC20231221000188

PATIENT
  Sex: Female

DRUGS (2)
  1. DUPIXENT [Suspect]
     Active Substance: DUPILUMAB
     Indication: Dermatitis atopic
     Dosage: 300 MG, QOW
     Route: 058
     Dates: start: 20200722
  2. PRELONE [Suspect]
     Active Substance: PREDNISOLONE

REACTIONS (7)
  - Pneumonitis [Recovered/Resolved]
  - Dyspnoea [Recovered/Resolved]
  - Asthma [Unknown]
  - Cough [Unknown]
  - Oropharyngeal pain [Recovered/Resolved]
  - Drug hypersensitivity [Recovered/Resolved]
  - Rash [Recovered/Resolved]

NARRATIVE: CASE EVENT DATE: 20250101
